FAERS Safety Report 4883436-4 (Version None)
Quarter: 2006Q1

REPORT INFORMATION
  Report Type: 
  Country: None (occurrence: None)
  Receive Date: 20060118
  Receipt Date: 20060110
  Transmission Date: 20060701
  Serious: Yes (Other)
  Sender: FDA-Public Use
  Company Number: 2006AP00168

PATIENT
  Sex: Female

DRUGS (1)
  1. ARIMIDEX [Suspect]
     Indication: BREAST CANCER
     Route: 048
     Dates: start: 20051109

REACTIONS (4)
  - AMMONIA INCREASED [None]
  - BLOOD BILIRUBIN INCREASED [None]
  - COMA [None]
  - LOSS OF CONSCIOUSNESS [None]
